FAERS Safety Report 8558925-1 (Version None)
Quarter: 2012Q3

REPORT INFORMATION
  Report Type: 
  Country: None (occurrence: None)
  Receive Date: 20120802
  Receipt Date: 20120719
  Transmission Date: 20120928
  Serious: Yes (Other)
  Sender: FDA-Public Use
  Company Number: CH-MYLANLABS-2012S1014981

PATIENT
  Age: 42 Year
  Sex: Female

DRUGS (2)
  1. TOPIRAMATE [Suspect]
     Indication: MIGRAINE PROPHYLAXIS
     Dosage: 400 MG DAILY
     Route: 065
  2. RISPERIDONE [Concomitant]
     Indication: SCHIZOPHRENIA
     Route: 065

REACTIONS (6)
  - NEPHROLITHIASIS [None]
  - HYPOCITRATURIA [None]
  - METABOLIC ACIDOSIS [None]
  - RENAL TUBULAR ACIDOSIS [None]
  - HYPERCALCAEMIA [None]
  - GASTRIC DISORDER [None]
